FAERS Safety Report 5711002-7 (Version None)
Quarter: 2008Q2

REPORT INFORMATION
  Report Type: 
  Country: None (occurrence: None)
  Receive Date: 20080421
  Receipt Date: 20080408
  Transmission Date: 20081010
  Serious: Yes (Life-Threatening)
  Sender: FDA-Public Use
  Company Number: PL-BAYER-200816379GPV

PATIENT
  Age: 42 Year
  Sex: Female

DRUGS (1)
  1. MIRENA [Suspect]
     Indication: CONTRACEPTION
     Dosage: TOTAL DAILY DOSE: 20 ?G
     Route: 015
     Dates: start: 20061005, end: 20061114

REACTIONS (4)
  - ABDOMINAL PAIN LOWER [None]
  - DYSPNOEA [None]
  - FIBRIN D DIMER INCREASED [None]
  - SYNCOPE [None]
